FAERS Safety Report 19275233 (Version 2)
Quarter: 2021Q3

REPORT INFORMATION
  Report Type: Spontaneous
  Country: US (occurrence: US)
  Receive Date: 20210519
  Receipt Date: 20210915
  Transmission Date: 20211014
  Serious: Yes (Hospitalization)
  Sender: FDA-Public Use
  Company Number: US-TEVA-2021-US-1912352

PATIENT
  Age: 85 Year
  Sex: Female

DRUGS (7)
  1. KETAMINE [Suspect]
     Active Substance: KETAMINE
     Indication: NEUROLOGICAL DECOMPENSATION
     Dosage: INFUSION RATE: 0.5 MG/KG/HR (ON DAY 1)
     Route: 050
  2. KETAMINE [Suspect]
     Active Substance: KETAMINE
     Indication: EVIDENCE BASED TREATMENT
     Dosage: INFUSION RATE: 1 MG/KG/HR (ON DAY 2)
     Route: 050
  3. LEVETIRACETAM. [Concomitant]
     Active Substance: LEVETIRACETAM
     Indication: FLUCTUANCE
     Dosage: 1000 MILLIGRAM DAILY;
     Route: 065
  4. GABAPENTIN. [Suspect]
     Active Substance: GABAPENTIN
     Indication: PRODUCT USED FOR UNKNOWN INDICATION
     Route: 065
  5. KETAMINE [Suspect]
     Active Substance: KETAMINE
     Dosage: INFUSION RATE: 1.5 MG/KG/HR (ON DAY 2)
     Route: 050
  6. DEXAMETHASONE. [Concomitant]
     Active Substance: DEXAMETHASONE
     Indication: SUBDURAL HAEMATOMA
     Dosage: 16 MILLIGRAM DAILY;
     Route: 065
  7. LEVETIRACETAM. [Concomitant]
     Active Substance: LEVETIRACETAM
     Dosage: 2000 MILLIGRAM DAILY;
     Route: 065

REACTIONS (4)
  - Sedation [Recovering/Resolving]
  - Somnolence [Recovering/Resolving]
  - Encephalopathy [Recovering/Resolving]
  - Depressed level of consciousness [Recovering/Resolving]
